FAERS Safety Report 7763361-1 (Version None)
Quarter: 2011Q3

REPORT INFORMATION
  Report Type: 
  Country: None (occurrence: None)
  Receive Date: 20110920
  Receipt Date: 20110908
  Transmission Date: 20111222
  Serious: Yes (Hospitalization)
  Sender: FDA-Public Use
  Company Number: US-ELI_LILLY_AND_COMPANY-US200911001318

PATIENT
  Sex: Female

DRUGS (3)
  1. FORTEO [Suspect]
     Dosage: 20 UG, QD
  2. FORTEO [Suspect]
     Indication: OSTEOPOROSIS
     Dosage: 20 UG, QD
     Dates: start: 20101001
  3. FORTEO [Suspect]
     Dosage: 20 UG, QD

REACTIONS (7)
  - MALAISE [None]
  - FATIGUE [None]
  - ANKLE FRACTURE [None]
  - TREMOR [None]
  - TIBIA FRACTURE [None]
  - DRY MOUTH [None]
  - WRONG TECHNIQUE IN DRUG USAGE PROCESS [None]
